FAERS Safety Report 7661779-9 (Version None)
Quarter: 2011Q3

REPORT INFORMATION
  Report Type: 
  Country: None (occurrence: None)
  Receive Date: 20110805
  Receipt Date: 20101027
  Transmission Date: 20111222
  Serious: No
  Sender: FDA-Public Use
  Company Number: US-ABBOTT-10P-163-0681702-00

PATIENT
  Sex: Female

DRUGS (2)
  1. NIASPAN [Suspect]
     Dates: start: 20090101, end: 20101001
  2. NIASPAN [Suspect]
     Indication: PRODUCT USED FOR UNKNOWN INDICATION
     Dosage: 1500 MG DAILY AT BED TIME
     Dates: start: 20101001

REACTIONS (1)
  - PAIN IN EXTREMITY [None]
